FAERS Safety Report 16676118 (Version 2)
Quarter: 2019Q3

REPORT INFORMATION
  Report Type: Spontaneous
  Country: US (occurrence: US)
  Receive Date: 20190807
  Receipt Date: 20190827
  Transmission Date: 20191004
  Serious: Yes (Death, Other)
  Sender: FDA-Public Use
  Company Number: US-UNITED THERAPEUTICS-UNT-2019-013152

PATIENT
  Sex: Female
  Weight: 90.7 kg

DRUGS (1)
  1. REMODULIN [Suspect]
     Active Substance: TREPROSTINIL
     Indication: PULMONARY ARTERIAL HYPERTENSION
     Dosage: 0.018 ?G/KG, CONTINUING
     Route: 041
     Dates: start: 20190319

REACTIONS (6)
  - Systemic scleroderma [Fatal]
  - Right ventricular dysfunction [Fatal]
  - Restrictive pulmonary disease [Fatal]
  - Myotonic dystrophy [Fatal]
  - Pulmonary arterial hypertension [Fatal]
  - Arrhythmia [Fatal]

NARRATIVE: CASE EVENT DATE: 2019
